FAERS Safety Report 8334859-2 (Version None)
Quarter: 2012Q2

REPORT INFORMATION
  Report Type: 
  Country: None (occurrence: None)
  Receive Date: 20120503
  Receipt Date: 20120430
  Transmission Date: 20120825
  Serious: Yes (Other)
  Sender: FDA-Public Use
  Company Number: US-PERRIGO-12US001976

PATIENT
  Sex: Female
  Weight: 54.422 kg

DRUGS (11)
  1. OXYMETAZOLINE HCL [Suspect]
     Indication: NASAL CONGESTION
     Dosage: 2-3 SPRAYS, BID
     Route: 045
     Dates: start: 20120125, end: 20120213
  2. OXYBUTYNIN [Concomitant]
     Indication: HYPERTONIC BLADDER
     Dosage: UNK
     Route: 065
  3. FISH OIL [Concomitant]
     Indication: SUPPLEMENTATION THERAPY
     Dosage: UNK
     Route: 065
  4. CALCIUM [Concomitant]
     Indication: SUPPLEMENTATION THERAPY
     Dosage: UNK
     Route: 065
  5. MINOCYCLINE HCL [Concomitant]
     Indication: HYPERTONIC BLADDER
     Dosage: UNK
     Route: 065
  6. CITALOPRAM HYDROBROMIDE [Concomitant]
     Indication: MOOD SWINGS
     Dosage: UNK
     Route: 065
  7. VITAMIN B COMPLEX CAP [Concomitant]
     Indication: SUPPLEMENTATION THERAPY
     Dosage: UNK
     Route: 065
  8. OXYMETAZOLINE HCL [Suspect]
     Dosage: 2-3 SPRAYS, TID
     Route: 045
     Dates: start: 20120214, end: 20120305
  9. THYROID HORMONES [Concomitant]
     Indication: THYROID DISORDER
     Dosage: UNK
     Route: 065
  10. METROGEL [Concomitant]
     Indication: ROSACEA
     Dosage: UNK
     Route: 065
  11. VITAMIN D [Concomitant]
     Indication: SUPPLEMENTATION THERAPY
     Dosage: UNK
     Route: 065

REACTIONS (6)
  - INCORRECT DRUG ADMINISTRATION DURATION [None]
  - CONDITION AGGRAVATED [None]
  - DRUG INEFFECTIVE [None]
  - INAPPROPRIATE SCHEDULE OF DRUG ADMINISTRATION [None]
  - ANOSMIA [None]
  - EAR PAIN [None]
